FAERS Safety Report 22228204 (Version 5)
Quarter: 2023Q2

REPORT INFORMATION
  Report Type: Spontaneous
  Country: US (occurrence: US)
  Receive Date: 20230419
  Receipt Date: 20230609
  Transmission Date: 20230721
  Serious: Yes (Death, Other)
  Sender: FDA-Public Use
  Company Number: US-PFIZER INC-202300158899

PATIENT
  Sex: Male

DRUGS (34)
  1. APIXABAN [Suspect]
     Active Substance: APIXABAN
     Dosage: UNK
  2. APIXABAN [Suspect]
     Active Substance: APIXABAN
     Dosage: UNK
  3. IRINOTECAN HYDROCHLORIDE [Suspect]
     Active Substance: IRINOTECAN HYDROCHLORIDE
     Dosage: UNK
     Dates: start: 20220420
  4. OXALIPLATIN [Suspect]
     Active Substance: OXALIPLATIN
     Dosage: UNK , CYCLE I WITH FOLFOX AND TRANSTUZUMAB
     Dates: start: 20210610
  5. OXALIPLATIN [Suspect]
     Active Substance: OXALIPLATIN
     Dosage: UNK, CYCLE 12 WITH FOLFOX AND TRANSTUZUMAB
     Dates: start: 20211117
  6. PACLITAXEL [Suspect]
     Active Substance: PACLITAXEL
     Dosage: CYCLE 5-DAY 15 WITH PACLITAXEL AND RAMICURIMAB
     Dates: start: 20220211
  7. PACLITAXEL [Suspect]
     Active Substance: PACLITAXEL
     Dosage: PACLITAXEL AND RAMICURIMAB
     Dates: start: 20220629
  8. PACLITAXEL [Suspect]
     Active Substance: PACLITAXEL
     Dosage: CYCLE 6-DAY I OF PACLITAXEL AND RAMICURIMAB
     Dates: start: 20221102
  9. PACLITAXEL [Suspect]
     Active Substance: PACLITAXEL
     Dosage: PACLITAXEL AND RAMICURIMAB
     Dates: start: 20221116
  10. TRASTUZUMAB [Suspect]
     Active Substance: TRASTUZUMAB
     Indication: Metastatic neoplasm
     Dosage: UNK, CYCLE I WITH FOLFOX AND TRANSTUZUMAB
     Dates: start: 20210610
  11. TRASTUZUMAB [Suspect]
     Active Substance: TRASTUZUMAB
     Dosage: UNK,  CYCLE 12 WITH FOLFOX AND TRANSTUZUMAB
     Dates: start: 20211117
  12. FLUOROURACIL [Suspect]
     Active Substance: FLUOROURACIL
     Indication: Metastatic neoplasm
     Dosage: UNK, CYCLE I OF FOLFOX ALONG WITH TRASTUZUMAB
     Dates: start: 20210610
  13. FLUOROURACIL [Suspect]
     Active Substance: FLUOROURACIL
     Dosage: UNK, CYCLE 12 OF WITH FOLFOX AND TRANSTUZUMAB
     Dates: start: 20211117
  14. LEUCOVORIN CALCIUM [Suspect]
     Active Substance: LEUCOVORIN CALCIUM
     Indication: Metastatic neoplasm
     Dosage: UNK, CYCLE I OF FOLFOX ALONG WITH TRASTUZUMAB
     Dates: start: 20210610
  15. LEUCOVORIN CALCIUM [Suspect]
     Active Substance: LEUCOVORIN CALCIUM
     Dosage: UNK, CYCLE 12 OF WITH FOLFOX AND TRANSTUZUMAB
     Dates: start: 20211117
  16. LEUCOVORIN CALCIUM [Suspect]
     Active Substance: LEUCOVORIN CALCIUM
     Indication: Metastatic neoplasm
     Dosage: FOLFIRI
     Dates: start: 20220420
  17. FLUOROURACIL [Suspect]
     Active Substance: FLUOROURACIL
     Indication: Metastatic neoplasm
     Dosage: FOLFIRI
     Dates: start: 20220420
  18. RAMUCIRUMAB [Suspect]
     Active Substance: RAMUCIRUMAB
     Indication: Metastases to liver
     Dosage: CYCLE 5-DAY 15 WITH RAMUCIRUMAB AND PACLITAXEL
     Dates: start: 20220211
  19. RAMUCIRUMAB [Suspect]
     Active Substance: RAMUCIRUMAB
     Dosage: RAMUCIRUMAB AND PACLITAXEL
     Dates: start: 20220629
  20. RAMUCIRUMAB [Suspect]
     Active Substance: RAMUCIRUMAB
     Dosage: CYCLE 6-DAY I OF PACLITAXEL AND RAMICURIMAB
     Dates: start: 20221102
  21. RAMUCIRUMAB [Suspect]
     Active Substance: RAMUCIRUMAB
     Dosage: PACLITAXEL AND RAMICURIMAB
     Dates: start: 20221116
  22. HERCEPTIN [Concomitant]
     Active Substance: TRASTUZUMAB
     Indication: Metastatic neoplasm
     Dosage: CYCLIC
     Dates: start: 20211117
  23. ACETAMINOPHEN [Concomitant]
     Active Substance: ACETAMINOPHEN
     Dosage: 650 MG, 1X/DAY
     Route: 048
     Dates: start: 20210610, end: 20210628
  24. DIPHENHYDRAMINE HYDROCHLORIDE [Concomitant]
     Active Substance: DIPHENHYDRAMINE HYDROCHLORIDE
     Dosage: 25 MG, 1X/DAY
     Route: 048
     Dates: start: 20220518
  25. DIPHENHYDRAMINE HYDROCHLORIDE [Concomitant]
     Active Substance: DIPHENHYDRAMINE HYDROCHLORIDE
     Dosage: 50 MG/ML  INTRAVENOUS DAILY PUSH OVER I MINUTES FOR 1 DAY
     Route: 042
     Dates: start: 20190311, end: 20230118
  26. HEPARIN LOCK FLUSH [Concomitant]
     Active Substance: HEPARIN SODIUM
     Dosage: UNK
     Route: 042
     Dates: start: 20210612, end: 20230208
  27. SODIUM CHLORIDE [Concomitant]
     Active Substance: SODIUM CHLORIDE
     Dosage: 0.9%500 ML (OF 0.9 %) INTRAVENOUS DAILY INTERMITTENT OVER I HOURS FOR 1 DAY
     Route: 042
     Dates: start: 20220718, end: 20230208
  28. ATORVASTATIN CALCIUM [Concomitant]
     Active Substance: ATORVASTATIN CALCIUM
     Dosage: 10 MG, 1X/DAY
     Route: 048
  29. CALCIUM\CHOLECALCIFEROL [Concomitant]
     Active Substance: CALCIUM\CHOLECALCIFEROL
     Dosage: 600-800 MG - UNIT
     Route: 048
  30. LYSINE [Concomitant]
     Active Substance: LYSINE
     Dosage: 500 MG, 1X/DAY
     Route: 048
  31. VITAMINS NOS [Concomitant]
     Active Substance: VITAMINS
     Dosage: UNK
     Route: 048
  32. NIACIN [Concomitant]
     Active Substance: NIACIN
     Dosage: 500 MG, 1X/DAY
     Route: 048
  33. TYLENOL [Concomitant]
     Active Substance: ACETAMINOPHEN
     Indication: Arthralgia
     Dosage: CONTROLLED RELEASE
     Route: 048
  34. TYLENOL [Concomitant]
     Active Substance: ACETAMINOPHEN
     Dosage: TYLENOL PM EXTRA STRENGTH (TABLET) 1 TABLET (OF 500-25 MG) ORAL AT BEDTIME
     Route: 048

REACTIONS (2)
  - Neoplasm progression [Fatal]
  - Neuropathy peripheral [Unknown]
